FAERS Safety Report 20552581 (Version 1)
Quarter: 2022Q1

REPORT INFORMATION
  Report Type: Spontaneous
  Country: US (occurrence: US)
  Receive Date: 20220304
  Receipt Date: 20220304
  Transmission Date: 20220423
  Serious: No
  Sender: FDA-Public Use
  Company Number: US-ALKERMES INC.-ALK-2022-001035

PATIENT
  Age: 39 Year
  Sex: Male
  Weight: 102.04 kg

DRUGS (1)
  1. VIVITROL [Suspect]
     Active Substance: NALTREXONE
     Indication: Drug dependence
     Dosage: 380 MILLIGRAM, QMO
     Route: 030
     Dates: start: 20220217

REACTIONS (2)
  - Tooth disorder [Unknown]
  - Toothache [Unknown]

NARRATIVE: CASE EVENT DATE: 20220201
